FAERS Safety Report 24943898 (Version 2)
Quarter: 2025Q1

REPORT INFORMATION
  Report Type: Report from Study
  Country: JP (occurrence: JP)
  Receive Date: 20250207
  Receipt Date: 20250218
  Transmission Date: 20250409
  Serious: Yes (Hospitalization)
  Sender: EISAI
  Company Number: JP-Eisai-202414296_LEQ_P_1

PATIENT
  Sex: Female
  Weight: 64 kg

DRUGS (1)
  1. LEQEMBI [Suspect]
     Active Substance: LECANEMAB-IRMB
     Indication: Dementia Alzheimer^s type
     Route: 042
     Dates: start: 20240805, end: 20250129

REACTIONS (1)
  - Brain contusion [Unknown]

NARRATIVE: CASE EVENT DATE: 20250129
